FAERS Safety Report 8772174 (Version 1)
Quarter: 2012Q4

REPORT INFORMATION
  Report Type: 
  Country: FR (occurrence: FR)
  Receive Date: 20120905
  Receipt Date: 20120905
  Transmission Date: 20130627
  Serious: Yes (Death)
  Sender: FDA-Public Use
  Company Number: FR-PFIZER INC-2012213390

PATIENT
  Age: 61 Year
  Sex: Male

DRUGS (4)
  1. TAZOCILLINE [Suspect]
     Indication: FEBRILE BONE MARROW APLASIA
     Dosage: 4 g, 4x/day
     Route: 042
     Dates: start: 20120721, end: 20120730
  2. TRIFLUCAN [Suspect]
     Indication: CANDIDA SEPSIS
     Dosage: 1 DF, 1x/day one spoon measure
     Route: 048
     Dates: start: 20120729, end: 20120803
  3. TRIFLUCAN [Suspect]
     Dosage: 1 DF, 1x/day one spoon measure
     Route: 048
     Dates: start: 20120817, end: 20120820
  4. CANCIDAS [Suspect]
     Indication: CANDIDA SEPSIS
     Dosage: 50 mg, 1x/day
     Route: 042
     Dates: start: 20120803, end: 20120817

REACTIONS (1)
  - Hepatitis fulminant [Fatal]
